FAERS Safety Report 12161838 (Version 2)
Quarter: 2017Q1

REPORT INFORMATION
  Report Type: Report from Study
  Country: BR (occurrence: BR)
  Receive Date: 20160309
  Receipt Date: 20170211
  Transmission Date: 20170428
  Serious: Yes (Death, Other)
  Sender: FDA-Public Use
  Company Number: BR-JNJFOC-20160107131

PATIENT

DRUGS (2)
  1. PARACETAMOL [Suspect]
     Active Substance: ACETAMINOPHEN
     Route: 065
  2. PARACETAMOL [Suspect]
     Active Substance: ACETAMINOPHEN
     Indication: DENGUE FEVER
     Route: 065

REACTIONS (4)
  - Hepatic necrosis [Unknown]
  - Dengue fever [Fatal]
  - Hepatic lesion [Unknown]
  - Liver injury [Fatal]
